FAERS Safety Report 5707020-5 (Version None)
Quarter: 2008Q2

REPORT INFORMATION
  Report Type: 
  Country: None (occurrence: None)
  Receive Date: 20080416
  Receipt Date: 20080409
  Transmission Date: 20081010
  Serious: Yes (Other)
  Sender: FDA-Public Use
  Company Number: A0721871A

PATIENT
  Sex: Female

DRUGS (2)
  1. LAMICTAL [Suspect]
     Indication: DRUG USE FOR UNKNOWN INDICATION
     Dosage: 200MG UNKNOWN
     Route: 048
     Dates: start: 20080101, end: 20080405
  2. TOPAMAX [Concomitant]

REACTIONS (5)
  - DYSPHONIA [None]
  - ERYTHEMA [None]
  - NAUSEA [None]
  - RASH [None]
  - SKIN EXFOLIATION [None]
